FAERS Safety Report 8103618-8 (Version None)
Quarter: 2012Q1

REPORT INFORMATION
  Report Type: 
  Country: None (occurrence: None)
  Receive Date: 20120201
  Receipt Date: 20120123
  Transmission Date: 20120608
  Serious: Yes (Hospitalization, Other)
  Sender: FDA-Public Use
  Company Number: FR-PFIZER INC-2009217467

PATIENT
  Age: 82 Year
  Sex: Female

DRUGS (14)
  1. DIGOXIN [Suspect]
     Dosage: UNK
     Route: 048
     Dates: start: 20090327
  2. LANTUS [Concomitant]
     Indication: TYPE 2 DIABETES MELLITUS
     Dosage: UNK
  3. LORAZEPAM [Concomitant]
     Dosage: UNK
     Route: 048
  4. MIRTAZAPINE [Concomitant]
     Dosage: UNK
     Route: 048
  5. ATORVASTATIN [Concomitant]
     Dosage: UNK
     Route: 048
  6. ALDACTONE [Suspect]
     Indication: HYPERTENSION
     Dosage: 25 MG, 1X/DAY
     Route: 048
     Dates: end: 20090317
  7. LASIX [Concomitant]
     Dosage: UNK
  8. PRAXILENE [Concomitant]
     Dosage: UNK
     Route: 048
  9. PREVISCAN [Concomitant]
     Dosage: UNK
     Route: 048
  10. ACTRAPID [Suspect]
     Indication: TYPE 2 DIABETES MELLITUS
     Dosage: UNK
     Route: 058
     Dates: end: 20090317
  11. RAMIPRIL [Suspect]
     Indication: HYPERTENSION
     Dosage: 10 MG, 1X/DAY
     Route: 048
     Dates: end: 20090317
  12. DIGOXIN [Suspect]
     Indication: CARDIAC FAILURE
     Dosage: 0.25 MG, 1X/DAY
     Route: 048
  13. AMLODIPINE BESYLATE [Concomitant]
     Dosage: UNK
     Route: 048
  14. ATARAX [Concomitant]
     Dosage: UNK

REACTIONS (6)
  - CARDIOACTIVE DRUG LEVEL INCREASED [None]
  - CARDIAC FAILURE [None]
  - CHOLESTASIS [None]
  - RENAL FAILURE [None]
  - DECREASED APPETITE [None]
  - DEHYDRATION [None]
